FAERS Safety Report 6065523-0 (Version None)
Quarter: 2009Q1

REPORT INFORMATION
  Report Type: 
  Country: None (occurrence: None)
  Receive Date: 20090204
  Receipt Date: 20090202
  Transmission Date: 20090719
  Serious: Yes (Other)
  Sender: FDA-Public Use
  Company Number: US-RB-009076-09

PATIENT

DRUGS (2)
  1. SUBUTEX [Suspect]
     Indication: DRUG USE FOR UNKNOWN INDICATION
     Dosage: DOSE AND FREQUENCY ARE UNKNOWN
     Route: 064
     Dates: end: 20090127
  2. SUBUTEX [Suspect]
     Dosage: DOSE AND FREQUENCY ARE UNKNOWN.
     Route: 063

REACTIONS (4)
  - DRUG EXPOSURE DURING PREGNANCY [None]
  - DRUG EXPOSURE VIA BREAST MILK [None]
  - NO ADVERSE EVENT [None]
  - PREMATURE BABY [None]
